FAERS Safety Report 10189072 (Version 1)
Quarter: 2014Q2

REPORT INFORMATION
  Report Type: Spontaneous
  Country: BE (occurrence: BE)
  Receive Date: 20140522
  Receipt Date: 20140522
  Transmission Date: 20141212
  Serious: Yes (Hospitalization, Disabling, Other)
  Sender: FDA-Public Use
  Company Number: BE-MERCK-1405BEL008283

PATIENT
  Age: 48 Year
  Sex: Female
  Weight: 56 kg

DRUGS (3)
  1. IVERMECTIN [Suspect]
     Indication: PROPHYLAXIS
     Dosage: 3 MG, ONCE
     Route: 048
     Dates: start: 201403, end: 201403
  2. IBUPROFEN [Suspect]
     Dosage: 600 MG, QD
     Route: 048
     Dates: start: 201403, end: 201403
  3. SIPRALEXA [Concomitant]
     Dosage: 10 MG, QD

REACTIONS (1)
  - Renal failure acute [Not Recovered/Not Resolved]
